FAERS Safety Report 5480555-9 (Version None)
Quarter: 2007Q4

REPORT INFORMATION
  Report Type: 
  Country: None (occurrence: None)
  Receive Date: 20071009
  Receipt Date: 20071004
  Transmission Date: 20080405
  Serious: Yes (Hospitalization)
  Sender: FDA-Public Use
  Company Number: A0686141A

PATIENT
  Age: 73 Year
  Sex: Male

DRUGS (10)
  1. AVANDIA [Suspect]
     Dosage: 4MG PER DAY
     Route: 048
     Dates: start: 20020101, end: 20061001
  2. AVANDARYL [Suspect]
     Dosage: .5TAB PER DAY
     Route: 048
     Dates: start: 20061001
  3. AVODART [Concomitant]
  4. UNSPECIFIED MEDICATION [Concomitant]
  5. BENAZEPRIL HYDROCHLORIDE [Concomitant]
  6. FLOMAX [Concomitant]
  7. POTASSIUM CHLORIDE [Concomitant]
  8. FUROSEMIDE [Concomitant]
  9. AMIODARONE [Concomitant]
  10. ACTONEL [Concomitant]

REACTIONS (7)
  - ARRHYTHMIA [None]
  - ATRIAL FIBRILLATION [None]
  - COMA [None]
  - GAIT DISTURBANCE [None]
  - HYPERSENSITIVITY [None]
  - MUSCULAR WEAKNESS [None]
  - STAPHYLOCOCCAL INFECTION [None]
